FAERS Safety Report 19698434 (Version 3)
Quarter: 2022Q2

REPORT INFORMATION
  Report Type: Report from Study
  Country: US (occurrence: US)
  Receive Date: 20210813
  Receipt Date: 20220504
  Transmission Date: 20220721
  Serious: Yes (Other)
  Sender: FDA-Public Use
  Company Number: US-PFIZER INC-202100986819

PATIENT
  Age: 2 Month
  Sex: Male

DRUGS (16)
  1. LIDOCAINE HYDROCHLORIDE [Suspect]
     Active Substance: LIDOCAINE HYDROCHLORIDE
     Indication: Long QT syndrome
     Dosage: 30 UG/KG (UG/(KG.MIN))
     Route: 042
  2. LIDOCAINE HYDROCHLORIDE [Suspect]
     Active Substance: LIDOCAINE HYDROCHLORIDE
     Indication: Ventricular arrhythmia
  3. LIDOCAINE HYDROCHLORIDE [Suspect]
     Active Substance: LIDOCAINE HYDROCHLORIDE
     Indication: Torsade de pointes
  4. LIDOCAINE HYDROCHLORIDE [Suspect]
     Active Substance: LIDOCAINE HYDROCHLORIDE
     Indication: Ventricular fibrillation
  5. LIDOCAINE HYDROCHLORIDE [Suspect]
     Active Substance: LIDOCAINE HYDROCHLORIDE
     Indication: Ventricular tachycardia
  6. LIDOCAINE HYDROCHLORIDE [Suspect]
     Active Substance: LIDOCAINE HYDROCHLORIDE
     Indication: Shock
  7. MEXILETINE [Concomitant]
     Active Substance: MEXILETINE
     Indication: Long QT syndrome
     Dosage: 21 MG/KG, 1X/DAY ( MG/(KG.D))
  8. MEXILETINE [Concomitant]
     Active Substance: MEXILETINE
     Indication: Ventricular arrhythmia
     Dosage: 7 MG/KG, 3X/DAY (PER DOSE EVERY 8 HOURS)
  9. FLECAINIDE [Concomitant]
     Active Substance: FLECAINIDE
     Indication: Long QT syndrome
     Dosage: 3 MG/KG, 1X/DAY (MG/(KG.D))
  10. FLECAINIDE [Concomitant]
     Active Substance: FLECAINIDE
     Indication: Ventricular arrhythmia
  11. NADOLOL [Concomitant]
     Active Substance: NADOLOL
     Indication: Long QT syndrome
     Dosage: 30 MG, DAILY (((20 MG ORALLY IN THE MORNING AND 10 MG ORALLY AT NIGHT)))
     Route: 048
  12. NADOLOL [Concomitant]
     Active Substance: NADOLOL
     Indication: Ventricular arrhythmia
  13. DILTIAZEM [Concomitant]
     Active Substance: DILTIAZEM
     Indication: Long QT syndrome
  14. DILTIAZEM [Concomitant]
     Active Substance: DILTIAZEM
     Indication: Ventricular arrhythmia
  15. PROPRANOLOL [Concomitant]
     Active Substance: PROPRANOLOL HYDROCHLORIDE
     Indication: Long QT syndrome
  16. PROPRANOLOL [Concomitant]
     Active Substance: PROPRANOLOL HYDROCHLORIDE
     Indication: Ventricular arrhythmia

REACTIONS (1)
  - Seizure [Recovered/Resolved]
